FAERS Safety Report 15889221 (Version 1)
Quarter: 2019Q1

REPORT INFORMATION
  Report Type: Spontaneous
  Country: CN (occurrence: CN)
  Receive Date: 20190130
  Receipt Date: 20190130
  Transmission Date: 20190417
  Serious: Yes (Hospitalization)
  Sender: FDA-Public Use
  Company Number: CN-EISAI MEDICAL RESEARCH-EC-2019-050856

PATIENT
  Age: 80 Year
  Sex: Male
  Weight: 80 kg

DRUGS (2)
  1. DONEPEZIL. [Suspect]
     Active Substance: DONEPEZIL
     Indication: MEMORY IMPAIRMENT
     Route: 048
     Dates: start: 201707, end: 201808
  2. DONEPEZIL. [Suspect]
     Active Substance: DONEPEZIL
     Route: 048
     Dates: start: 201808, end: 201810

REACTIONS (2)
  - Syncope [Recovered/Resolved]
  - Diarrhoea [Not Recovered/Not Resolved]

NARRATIVE: CASE EVENT DATE: 201808
